FAERS Safety Report 7048794-3 (Version None)
Quarter: 2010Q4

REPORT INFORMATION
  Report Type: 
  Country: None (occurrence: None)
  Receive Date: 20101018
  Receipt Date: 20101004
  Transmission Date: 20110411
  Serious: Yes (Other)
  Sender: FDA-Public Use
  Company Number: PHFR2010GB01372

PATIENT
  Sex: Male
  Weight: 110 kg

DRUGS (9)
  1. CLOZARIL [Suspect]
     Indication: SCHIZOPHRENIA
     Dosage: UNK
     Route: 048
     Dates: start: 20040113, end: 20100521
  2. CLOZARIL [Suspect]
     Dosage: 50 MG, QD
     Dates: start: 20100723, end: 20100727
  3. VALPROATE SODIUM [Concomitant]
     Indication: AFFECTIVE DISORDER
     Dosage: 1000 MG, BID
  4. VALPROATE SODIUM [Concomitant]
     Dosage: 750 MG, BID
  5. LANSOPRAZOLE [Concomitant]
     Dosage: 15 MG, QD
  6. BEZAFIBRATE [Concomitant]
     Dosage: 400 MG, QD
     Route: 048
  7. TERAZOSIN HCL [Concomitant]
     Dosage: 2 MG, QD
  8. OLANZAPINE [Concomitant]
     Indication: AFFECTIVE DISORDER
     Dosage: 5 MG, BID
  9. AMLODIPINE [Concomitant]
     Dosage: 10 MG, QD
     Route: 048

REACTIONS (13)
  - DISORIENTATION [None]
  - DRUG WITHDRAWAL SYNDROME [None]
  - HYPERHIDROSIS [None]
  - HYPERTENSION [None]
  - INCOHERENT [None]
  - MALAISE [None]
  - MENTAL DISORDER [None]
  - MUSCULAR WEAKNESS [None]
  - NEUTROPHIL COUNT DECREASED [None]
  - PLATELET COUNT DECREASED [None]
  - SOMNOLENCE [None]
  - TARDIVE DYSKINESIA [None]
  - WHITE BLOOD CELL COUNT DECREASED [None]
